FAERS Safety Report 25498096 (Version 1)
Quarter: 2025Q3

REPORT INFORMATION
  Report Type: Spontaneous
  Country: EU (occurrence: EU)
  Receive Date: 20250701
  Receipt Date: 20250701
  Transmission Date: 20251020
  Serious: Yes (Other)
  Sender: AUROBINDO
  Company Number: EU-UCBSA-2025033762

PATIENT
  Age: 26 Year
  Sex: Female

DRUGS (2)
  1. LACOSAMIDE [Suspect]
     Active Substance: LACOSAMIDE
     Indication: Temporal lobe epilepsy
     Route: 065
  2. BRIVARACETAM [Suspect]
     Active Substance: BRIVARACETAM
     Indication: Epilepsy
     Route: 065

REACTIONS (7)
  - Altered state of consciousness [Unknown]
  - Seizure [Unknown]
  - Tardive dyskinesia [Unknown]
  - Nausea [Unknown]
  - Restlessness [Unknown]
  - Taste disorder [Unknown]
  - Urinary incontinence [Unknown]
